APPROVED DRUG PRODUCT: GEMCITABINE HYDROCHLORIDE
Active Ingredient: GEMCITABINE HYDROCHLORIDE
Strength: EQ 2GM BASE/VIAL
Dosage Form/Route: INJECTABLE;INJECTION
Application: A079183 | Product #001 | TE Code: AP
Applicant: HOSPIRA INC
Approved: Nov 15, 2010 | RLD: No | RS: Yes | Type: RX